FAERS Safety Report 8977827 (Version 1)
Quarter: 2012Q4

REPORT INFORMATION
  Report Type: 
  Country: US (occurrence: US)
  Receive Date: 20121219
  Receipt Date: 20121219
  Transmission Date: 20130627
  Serious: Yes (Hospitalization)
  Sender: FDA-Public Use
  Company Number: US-SANOFI-AVENTIS-2012SA090466

PATIENT
  Sex: Male

DRUGS (2)
  1. LANTUS [Suspect]
     Route: 058
  2. ALL OTHER THERAPEUTIC PRODUCTS [Concomitant]

REACTIONS (1)
  - Hospitalisation [Unknown]
